FAERS Safety Report 20227111 (Version 1)
Quarter: 2021Q4

REPORT INFORMATION
  Report Type: Spontaneous
  Country: US (occurrence: US)
  Receive Date: 20211224
  Receipt Date: 20211224
  Transmission Date: 20220303
  Serious: Yes (Hospitalization, Other)
  Sender: FDA-Public Use
  Company Number: US-CADILA HEALTHCARE LIMITED-US-ZYDUS-072632

PATIENT

DRUGS (13)
  1. SERTRALINE [Suspect]
     Active Substance: SERTRALINE HYDROCHLORIDE
     Indication: Product used for unknown indication
     Dosage: UNK
     Route: 065
     Dates: start: 202003, end: 2020
  2. BUSPIRONE [Suspect]
     Active Substance: BUSPIRONE HYDROCHLORIDE
     Indication: Product used for unknown indication
     Dosage: UNK
     Route: 065
     Dates: start: 2020
  3. OLANZAPINE [Suspect]
     Active Substance: OLANZAPINE
     Indication: Intermittent explosive disorder
     Dosage: 5 MILLIGRAM, QD (NIGHTLY)
     Route: 065
  4. OLANZAPINE [Suspect]
     Active Substance: OLANZAPINE
     Indication: Aggression
  5. ARIPIPRAZOLE [Suspect]
     Active Substance: ARIPIPRAZOLE
     Indication: Intermittent explosive disorder
     Route: 065
  6. CLONAZEPAM [Suspect]
     Active Substance: CLONAZEPAM
     Indication: Generalised anxiety disorder
     Dosage: 0.25 MILLIGRAM, QD
     Route: 065
     Dates: end: 202103
  7. CLONAZEPAM [Suspect]
     Active Substance: CLONAZEPAM
     Dosage: TAPER
     Route: 065
     Dates: start: 202103
  8. VALPROIC ACID [Concomitant]
     Active Substance: VALPROIC ACID
     Indication: Intermittent explosive disorder
     Dosage: UNK
  9. VALPROIC ACID [Concomitant]
     Active Substance: VALPROIC ACID
     Indication: Aggression
     Dosage: 250 MILLIGRAM, BID
     Dates: start: 2020, end: 202101
  10. RISPERIDONE [Concomitant]
     Active Substance: RISPERIDONE
     Indication: Intermittent explosive disorder
     Dosage: UNK
  11. RISPERIDONE [Concomitant]
     Active Substance: RISPERIDONE
     Indication: Aggression
     Dosage: 1 GRAM, QD (NIGHTLY)
     Dates: start: 202008
  12. CLINDAMYCIN [Concomitant]
     Active Substance: CLINDAMYCIN
     Indication: Parotitis
  13. IPRATROPIUM [Concomitant]
     Active Substance: IPRATROPIUM
     Indication: Salivary hypersecretion
     Dosage: UNK

REACTIONS (3)
  - Disinhibition [Unknown]
  - Parotid gland enlargement [Not Recovered/Not Resolved]
  - Nausea [Unknown]
